FAERS Safety Report 8559360-2 (Version None)
Quarter: 2012Q3

REPORT INFORMATION
  Report Type: 
  Country: None (occurrence: None)
  Receive Date: 20120802
  Receipt Date: 20120801
  Transmission Date: 20120928
  Serious: Yes (Death, Hospitalization)
  Sender: FDA-Public Use
  Company Number: PHHY2012IL059943

PATIENT
  Sex: Male
  Weight: 90 kg

DRUGS (2)
  1. SANDOSTATIN LAR [Suspect]
     Dosage: 60 MG, EVERY 28 DAYS
     Dates: end: 20120709
  2. SANDOSTATIN LAR [Suspect]
     Indication: CARCINOID TUMOUR
     Dosage: 60 MG, EVERY 28 DAYS
     Dates: start: 20110117

REACTIONS (3)
  - GENERAL PHYSICAL HEALTH DETERIORATION [None]
  - NEOPLASM MALIGNANT [None]
  - AMMONIA INCREASED [None]
